FAERS Safety Report 7138121-5 (Version None)
Quarter: 2010Q4

REPORT INFORMATION
  Report Type: 
  Country: None (occurrence: None)
  Receive Date: 20101206
  Receipt Date: 20101124
  Transmission Date: 20110411
  Serious: Yes (Death)
  Sender: FDA-Public Use
  Company Number: FR-CELGENEUS-056-C5013-10112898

PATIENT
  Sex: Male
  Weight: 60 kg

DRUGS (8)
  1. CC-5013\PLACEBO [Suspect]
     Indication: PROSTATE CANCER
     Route: 048
     Dates: start: 20101116, end: 20101125
  2. DOCETAXEL [Suspect]
     Indication: PROSTATE CANCER
     Route: 065
     Dates: start: 20101116, end: 20101125
  3. PREDNISONE [Suspect]
     Indication: PROSTATE CANCER
     Route: 065
     Dates: start: 20101116, end: 20101125
  4. OXYCONTIN [Concomitant]
     Indication: BONE PAIN
     Route: 048
     Dates: start: 20101116, end: 20101125
  5. OXYNORM [Concomitant]
     Indication: BONE PAIN
     Route: 065
     Dates: start: 20101116, end: 20101125
  6. INIPOMP [Concomitant]
     Indication: PEPTIC ULCER
     Route: 048
     Dates: start: 20101018, end: 20101125
  7. LYRICA [Concomitant]
     Indication: PAIN
     Route: 048
     Dates: start: 20101018, end: 20101125
  8. ENANTONE LP [Concomitant]
     Indication: PROSTATE CANCER
     Route: 030
     Dates: start: 20101116, end: 20101125

REACTIONS (2)
  - DISSEMINATED INTRAVASCULAR COAGULATION [None]
  - SEPTIC SHOCK [None]
